FAERS Safety Report 19742320 (Version 3)
Quarter: 2022Q2

REPORT INFORMATION
  Report Type: Spontaneous
  Country: US (occurrence: None)
  Receive Date: 20210824
  Receipt Date: 20220407
  Transmission Date: 20220720
  Serious: Yes (Other)
  Sender: FDA-Public Use
  Company Number: 2018SF65106

PATIENT
  Age: 65 Year
  Sex: Male
  Weight: 95.7 kg

DRUGS (45)
  1. PRILOSEC OTC [Suspect]
     Active Substance: OMEPRAZOLE MAGNESIUM
     Indication: Gastrooesophageal reflux disease
     Dosage: FOR VARIOUS DATES AND YEARS
     Route: 048
  2. PRILOSEC OTC [Suspect]
     Active Substance: OMEPRAZOLE MAGNESIUM
     Indication: Gastrooesophageal reflux disease
     Route: 048
     Dates: start: 2006
  3. PRILOSEC [Suspect]
     Active Substance: OMEPRAZOLE MAGNESIUM
     Indication: Gastrooesophageal reflux disease
     Route: 048
     Dates: start: 2006
  4. PRILOSEC [Suspect]
     Active Substance: OMEPRAZOLE MAGNESIUM
     Indication: Gastrooesophageal reflux disease
     Dosage: GENERIC
     Route: 065
     Dates: start: 2006
  5. BETAMETHASONE [Concomitant]
     Active Substance: BETAMETHASONE
  6. NAFTIN [Concomitant]
     Active Substance: NAFTIFINE HYDROCHLORIDE
  7. AMLODIPINE [Concomitant]
     Active Substance: AMLODIPINE BESYLATE
  8. LEVITRA [Concomitant]
     Active Substance: VARDENAFIL HYDROCHLORIDE
  9. TRILYTE [Concomitant]
     Active Substance: POLYETHYLENE GLYCOL 3350\POTASSIUM CHLORIDE\SODIUM BICARBONATE\SODIUM CHLORIDE
  10. OXISTAT [Concomitant]
     Active Substance: OXICONAZOLE NITRATE
  11. RAPAFLO [Concomitant]
     Active Substance: SILODOSIN
  12. AZITHROMYCIN [Concomitant]
     Active Substance: AZITHROMYCIN
  13. FLOMAX [Concomitant]
     Active Substance: TAMSULOSIN HYDROCHLORIDE
  14. AMOXICILLIN [Concomitant]
     Active Substance: AMOXICILLIN
  15. CLARITHROMYCIN [Concomitant]
     Active Substance: CLARITHROMYCIN
  16. NAPROXEN [Concomitant]
     Active Substance: NAPROXEN
  17. DICLOFENAC [Concomitant]
     Active Substance: DICLOFENAC
  18. ACETAMINOPHEN\HYDROCODONE BITARTRATE [Concomitant]
     Active Substance: ACETAMINOPHEN\HYDROCODONE BITARTRATE
  19. SPIRONOLACTONE [Concomitant]
     Active Substance: SPIRONOLACTONE
  20. METFORMIN [Concomitant]
     Active Substance: METFORMIN HYDROCHLORIDE
  21. CLOBETASOL [Concomitant]
     Active Substance: CLOBETASOL
  22. PREDNISONE [Concomitant]
     Active Substance: PREDNISONE
  23. PERMETHRIN [Concomitant]
     Active Substance: PERMETHRIN
  24. FINASTERIDE [Concomitant]
     Active Substance: FINASTERIDE
  25. FENOFIBRATE [Concomitant]
     Active Substance: FENOFIBRATE
  26. CEPHALEXIN [Concomitant]
     Active Substance: CEPHALEXIN
  27. TRAMADOL [Concomitant]
     Active Substance: TRAMADOL
  28. METHYLPREDNISOLONE [Concomitant]
     Active Substance: METHYLPREDNISOLONE
  29. IBUPROFEN [Concomitant]
     Active Substance: IBUPROFEN
  30. DIAZEPAM [Concomitant]
     Active Substance: DIAZEPAM
  31. WARFARIN [Concomitant]
     Active Substance: WARFARIN
  32. VITAMIN D2 [Concomitant]
     Active Substance: ERGOCALCIFEROL
  33. MONTELUKAST [Concomitant]
     Active Substance: MONTELUKAST SODIUM
  34. KLOR-CON [Concomitant]
     Active Substance: POTASSIUM CHLORIDE
  35. BENICAR [Concomitant]
     Active Substance: OLMESARTAN MEDOXOMIL
  36. ALLOPURINOL [Concomitant]
     Active Substance: ALLOPURINOL
  37. VERAPAMIL [Concomitant]
     Active Substance: VERAPAMIL HYDROCHLORIDE
  38. TRILIPIX [Concomitant]
     Active Substance: FENOFIBRIC ACID
  39. FUROSEMIDE [Concomitant]
     Active Substance: FUROSEMIDE
  40. PRAVASTATIN SODIUM [Concomitant]
     Active Substance: PRAVASTATIN SODIUM
  41. LOSARTAN POTASSIUM [Concomitant]
     Active Substance: LOSARTAN POTASSIUM
  42. OMEGA-3 ACIDS [Concomitant]
     Active Substance: OMEGA-3 FATTY ACIDS
  43. ACETAMINOPHEN\CODEINE PHOSPHATE [Concomitant]
     Active Substance: ACETAMINOPHEN\CODEINE PHOSPHATE
  44. FAMOTIDINE [Concomitant]
     Active Substance: FAMOTIDINE
  45. RANITIDINE [Concomitant]
     Active Substance: RANITIDINE

REACTIONS (3)
  - Chronic kidney disease [Not Recovered/Not Resolved]
  - Acute kidney injury [Not Recovered/Not Resolved]
  - Renal failure [Not Recovered/Not Resolved]

NARRATIVE: CASE EVENT DATE: 20110101
